FAERS Safety Report 8172747-5 (Version None)
Quarter: 2012Q1

REPORT INFORMATION
  Report Type: 
  Country: None (occurrence: None)
  Receive Date: 20120229
  Receipt Date: 20120223
  Transmission Date: 20120608
  Serious: Yes (Hospitalization)
  Sender: FDA-Public Use
  Company Number: LT-AMGEN-LTUSP2012011166

PATIENT
  Age: 81 Year
  Sex: Female

DRUGS (4)
  1. MONOPRIL [Concomitant]
     Indication: HYPERTENSION
     Dosage: UNK
  2. ANTIHYPERTENSIVES [Concomitant]
     Dosage: UNK
  3. TRENTAL [Concomitant]
     Dosage: UNK
  4. PROLIA [Suspect]
     Indication: OSTEOPOROSIS POSTMENOPAUSAL
     Dosage: 60 MG, UNK
     Route: 058
     Dates: start: 20120127

REACTIONS (6)
  - INCONTINENCE [None]
  - ARRHYTHMIA [None]
  - CEREBROVASCULAR ACCIDENT [None]
  - COUGH [None]
  - ASTHENIA [None]
  - PYREXIA [None]
